FAERS Safety Report 15857200 (Version 1)
Quarter: 2018Q4

REPORT INFORMATION
  Report Type: Spontaneous
  Country: US (occurrence: US)
  Receive Date: 20181228
  Receipt Date: 20181228
  Transmission Date: 20190205
  Serious: Yes (Death, Hospitalization)
  Sender: FDA-Public Use
  Company Number: None

PATIENT
  Age: 67 Year
  Sex: Female
  Weight: 94 kg

DRUGS (18)
  1. XANAX [Concomitant]
     Active Substance: ALPRAZOLAM
  2. RITUXIMAB. [Suspect]
     Active Substance: RITUXIMAB
     Indication: DIFFUSE LARGE B-CELL LYMPHOMA
  3. ZOFRAN [Concomitant]
     Active Substance: ONDANSETRON HYDROCHLORIDE
  4. COMPAZINE [Concomitant]
     Active Substance: PROCHLORPERAZINE MALEATE
  5. METOPROLOL. [Concomitant]
     Active Substance: METOPROLOL
  6. MAG OX [Concomitant]
     Active Substance: MAGNESIUM OXIDE
  7. FUROSEMIDE. [Concomitant]
     Active Substance: FUROSEMIDE
  8. CYCLOPHOSPHAMIDE. [Suspect]
     Active Substance: CYCLOPHOSPHAMIDE
  9. PREDNISONE. [Suspect]
     Active Substance: PREDNISONE
  10. OXYCODONE [Concomitant]
     Active Substance: OXYCODONE
  11. ALLOPURINOL. [Concomitant]
     Active Substance: ALLOPURINOL
  12. DOXORUBICIN [Suspect]
     Active Substance: DOXORUBICIN
  13. VINCRISTINE [Suspect]
     Active Substance: VINCRISTINE
  14. CELEXA [Concomitant]
     Active Substance: CITALOPRAM HYDROBROMIDE
  15. BISACODYL. [Concomitant]
     Active Substance: BISACODYL
  16. SYNTHROID [Concomitant]
     Active Substance: LEVOTHYROXINE SODIUM
  17. APAP [Concomitant]
     Active Substance: ACETAMINOPHEN
  18. ALBUTEROL. [Concomitant]
     Active Substance: ALBUTEROL

REACTIONS (1)
  - Neutropenia [None]

NARRATIVE: CASE EVENT DATE: 20181025
